FAERS Safety Report 5220346-7 (Version None)
Quarter: 2007Q1

REPORT INFORMATION
  Report Type: 
  Country: None (occurrence: None)
  Receive Date: 20061201
  Receipt Date: 20060714
  Transmission Date: 20070707
  Serious: No
  Sender: FDA-Public Use
  Company Number: 2006PV017630

PATIENT
  Age: 67 Year
  Sex: Female
  Weight: 86.637 kg

DRUGS (4)
  1. BYETTA [Suspect]
     Indication: DIABETES MELLITUS NON-INSULIN-DEPENDENT
     Dosage: SEE IMAGE
     Route: 058
     Dates: start: 20060628, end: 20060712
  2. BYETTA [Suspect]
     Indication: DIABETES MELLITUS NON-INSULIN-DEPENDENT
     Dosage: SEE IMAGE
     Route: 058
     Dates: start: 20060713
  3. FORTAMET ER [Concomitant]
  4. GLIMEPIRIDE [Concomitant]

REACTIONS (5)
  - BLOOD GLUCOSE DECREASED [None]
  - COLD SWEAT [None]
  - CYSTITIS [None]
  - THERAPEUTIC RESPONSE UNEXPECTED [None]
  - TREMOR [None]
